FAERS Safety Report 16243027 (Version 1)
Quarter: 2019Q2

REPORT INFORMATION
  Report Type: Spontaneous
  Country: DE (occurrence: DE)
  Receive Date: 20190426
  Receipt Date: 20190426
  Transmission Date: 20190711
  Serious: Yes (Hospitalization)
  Sender: FDA-Public Use
  Company Number: DE-TEVA-2019-DE-1039328

PATIENT
  Age: 67 Year
  Sex: Male

DRUGS (6)
  1. FOLSAEURE 5 MG [Suspect]
     Active Substance: FOLIC ACID
     Dosage: 5 MG PER WEEK
     Route: 065
  2. METHOTREXATE. [Suspect]
     Active Substance: METHOTREXATE
     Dosage: 12.5 MG PER WEEK
     Route: 065
     Dates: start: 201503
  3. ASS 100 [Suspect]
     Active Substance: ASPIRIN
     Dosage: 100 MILLIGRAM DAILY;
     Route: 065
  4. AMLODIPIN 10 MG [Suspect]
     Active Substance: AMLODIPINE BESYLATE
     Dosage: 10 MILLIGRAM DAILY;
     Route: 065
  5. LANTUS [Suspect]
     Active Substance: INSULIN GLARGINE
     Dosage: DOSED AFTER BLOOD SUGAR LEVEL
     Route: 065
  6. HUMULIN NOS [Suspect]
     Active Substance: INSULIN HUMAN
     Dosage: DOSED AFTER BLOOD SUGAR LEVEL
     Route: 065

REACTIONS (1)
  - Leishmaniasis [Not Recovered/Not Resolved]
